FAERS Safety Report 4491293-3 (Version None)
Quarter: 2004Q3

REPORT INFORMATION
  Report Type: 
  Country: None (occurrence: None)
  Receive Date: 20040921
  Receipt Date: 20040312
  Transmission Date: 20050211
  Serious: Yes (Hospitalization)
  Sender: FDA-Public Use
  Company Number: 163-20785-04030317 (0)

PATIENT
  Age: 79 Year
  Sex: Male
  Weight: 79.7 kg

DRUGS (5)
  1. THALOMID [Suspect]
     Indication: MULTIPLE MYELOMA
     Dosage: 50 MG, QOD, ORAL
     Route: 048
     Dates: start: 20021219
  2. DOXIL [Suspect]
     Indication: MULTIPLE MYELOMA
     Dosage: 40 MG/M2, Q28 DAYS, INTRAVENOUS
     Route: 042
     Dates: start: 20021219, end: 20030606
  3. VINCRISTINE [Suspect]
     Indication: MULTIPLE MYELOMA
     Dosage: 2 MG, Q28, DAYS, INTRAVENOUS
     Route: 042
     Dates: start: 20021219, end: 20030606
  4. DECADRON [Suspect]
     Indication: MULTIPLE MYELOMA
     Dosage: 40 MGF, Q28, DAYS, ORAL
     Route: 048
     Dates: start: 20021219, end: 20030606
  5. PREDNISONE [Suspect]
     Indication: MULTIPLE MYELOMA
     Dosage: 50 MG, QOD
     Dates: start: 20030606

REACTIONS (2)
  - BACK PAIN [None]
  - DISEASE PROGRESSION [None]
